FAERS Safety Report 10205629 (Version 1)
Quarter: 2014Q2

REPORT INFORMATION
  Report Type: Spontaneous
  Country: US (occurrence: US)
  Receive Date: 20140529
  Receipt Date: 20140529
  Transmission Date: 20141212
  Serious: Yes (Other)
  Sender: FDA-Public Use
  Company Number: US-ABBVIE-14P-163-1240560-00

PATIENT
  Sex: Female
  Weight: 76.27 kg

DRUGS (5)
  1. DEPAKOTE [Suspect]
     Indication: CONVULSION
     Dates: start: 1999
  2. ATIVAN [Concomitant]
     Indication: ANXIETY
  3. ATIVAN [Concomitant]
     Indication: PANIC ATTACK
  4. DILANTIN [Concomitant]
     Indication: CONVULSION
  5. FOLIC ACID [Concomitant]
     Indication: VITAMIN SUPPLEMENTATION

REACTIONS (12)
  - Visual acuity reduced [Not Recovered/Not Resolved]
  - Convulsion [Not Recovered/Not Resolved]
  - Osteoporosis [Not Recovered/Not Resolved]
  - Asthenia [Not Recovered/Not Resolved]
  - Fatigue [Not Recovered/Not Resolved]
  - Weight increased [Not Recovered/Not Resolved]
  - Decreased appetite [Not Recovered/Not Resolved]
  - Dizziness [Not Recovered/Not Resolved]
  - Fibromyalgia [Not Recovered/Not Resolved]
  - Gait disturbance [Not Recovered/Not Resolved]
  - Petit mal epilepsy [Unknown]
  - Stress [Unknown]
